FAERS Safety Report 6257270-7 (Version None)
Quarter: 2009Q2

REPORT INFORMATION
  Report Type: 
  Country: None (occurrence: None)
  Receive Date: 20090630
  Receipt Date: 20090630
  Transmission Date: 20091009
  Serious: Yes (Hospitalization)
  Sender: FDA-Public Use
  Company Number: None

PATIENT
  Age: 40 Year
  Sex: Male
  Weight: 105.2345 kg

DRUGS (7)
  1. COLCHICINE 0.6 MG [Suspect]
     Indication: RHABDOMYOLYSIS
     Dosage: 0.6 MG Q 4 H PRN PO  1-2 WKS PRIOR TO ED VISIT
     Route: 048
  2. METOPROLOL SUCCINATE [Concomitant]
  3. AMLODIPINE [Concomitant]
  4. CLONIDINE [Concomitant]
  5. RENAGEL [Concomitant]
  6. VITAMIN B COMPLEX CAP [Concomitant]
  7. IBUPROFEN [Concomitant]

REACTIONS (3)
  - CHILLS [None]
  - PYREXIA [None]
  - RHABDOMYOLYSIS [None]
